FAERS Safety Report 16812606 (Version 2)
Quarter: 2019Q3

REPORT INFORMATION
  Report Type: Spontaneous
  Country: US (occurrence: US)
  Receive Date: 20190916
  Receipt Date: 20190917
  Transmission Date: 20191005
  Serious: Yes (Other)
  Sender: FDA-Public Use
  Company Number: US-CELGENEUS-USA-20190902818

PATIENT
  Sex: Male

DRUGS (2)
  1. DAKOGEN [Concomitant]
     Indication: PRODUCT USED FOR UNKNOWN INDICATION
     Route: 065
  2. REVLIMID [Suspect]
     Active Substance: LENALIDOMIDE
     Indication: MYELODYSPLASTIC SYNDROME
     Route: 048

REACTIONS (8)
  - Renal disorder [Unknown]
  - Blood iron increased [Unknown]
  - Thyroid disorder [Unknown]
  - General physical health deterioration [Unknown]
  - Full blood count decreased [Unknown]
  - Asthenia [Unknown]
  - Fatigue [Unknown]
  - Liver disorder [Unknown]
